FAERS Safety Report 5644762-4 (Version None)
Quarter: 2008Q1

REPORT INFORMATION
  Report Type: 
  Country: None (occurrence: None)
  Receive Date: 20080229
  Receipt Date: 20070723
  Transmission Date: 20080703
  Serious: No
  Sender: FDA-Public Use
  Company Number: A0665780A

PATIENT
  Sex: Female

DRUGS (5)
  1. VALTREX [Suspect]
     Indication: DRUG USE FOR UNKNOWN INDICATION
     Dosage: 500MG TWICE PER DAY
     Route: 048
     Dates: start: 20070719
  2. KLONOPIN [Concomitant]
  3. WELLBUTRIN [Concomitant]
  4. PROCARDIA [Concomitant]
  5. LAMICTAL [Concomitant]

REACTIONS (1)
  - PRURITUS [None]
